FAERS Safety Report 5716095-9 (Version None)
Quarter: 2008Q2

REPORT INFORMATION
  Report Type: 
  Country: None (occurrence: None)
  Receive Date: 20080423
  Receipt Date: 20080423
  Transmission Date: 20081010
  Serious: Yes (Hospitalization)
  Sender: FDA-Public Use
  Company Number: None

PATIENT
  Age: 75 Year
  Sex: Male

DRUGS (1)
  1. ZILEUTON 600 MG CRITICAL THERAPEUTICS [Suspect]
     Indication: CHRONIC OBSTRUCTIVE PULMONARY DISEASE
     Dosage: ONE TABLET 4 X DAY PO
     Route: 048

REACTIONS (7)
  - ASPIRATION JOINT ABNORMAL [None]
  - BURSITIS [None]
  - INJURY [None]
  - JOINT SWELLING [None]
  - LACERATION [None]
  - STAPHYLOCOCCAL INFECTION [None]
  - SUICIDAL IDEATION [None]
